FAERS Safety Report 18330719 (Version 2)
Quarter: 2020Q3

REPORT INFORMATION
  Report Type: Spontaneous
  Country: FR (occurrence: FR)
  Receive Date: 20200930
  Receipt Date: 20200930
  Transmission Date: 20201103
  Serious: Yes (Death, Hospitalization, Disabling)
  Sender: FDA-Public Use
  Company Number: FR-PFIZER INC-2020-07429

PATIENT
  Age: 63 Year
  Sex: Male

DRUGS (6)
  1. METFORMINE [METFORMIN] [Concomitant]
     Active Substance: METFORMIN HYDROCHLORIDE
     Dosage: 3000 MG DAILY
     Route: 048
  2. ABASAGLAR [Concomitant]
     Active Substance: INSULIN GLARGINE
     Dosage: 32 IU DAILY
     Route: 065
  3. KEYTRUDA [Suspect]
     Active Substance: PEMBROLIZUMAB
     Indication: MALIGNANT MELANOMA
     Dosage: UNK
     Route: 042
     Dates: start: 20170404, end: 20190614
  4. BRAFTOVI [Suspect]
     Active Substance: ENCORAFENIB
     Indication: MALIGNANT MELANOMA
     Dosage: UNK
     Route: 065
     Dates: start: 20191030
  5. HUMALOG [Concomitant]
     Active Substance: INSULIN LISPRO
     Dosage: 22 IU ? 16 IU ? 14 IU
     Route: 058
  6. MEKTOVI [Suspect]
     Active Substance: BINIMETINIB
     Indication: MALIGNANT MELANOMA
     Dosage: UNK
     Route: 065
     Dates: start: 20191030

REACTIONS (1)
  - Latent autoimmune diabetes in adults [Not Recovered/Not Resolved]

NARRATIVE: CASE EVENT DATE: 20200116
